FAERS Safety Report 13685040 (Version 1)
Quarter: 2017Q2

REPORT INFORMATION
  Report Type: Spontaneous
  Country: US (occurrence: US)
  Receive Date: 20170623
  Receipt Date: 20170623
  Transmission Date: 20170830
  Serious: No
  Sender: FDA-Public Use
  Company Number: US-BAYER-2017-117727

PATIENT
  Age: 70 Year
  Sex: Female

DRUGS (1)
  1. BETASERON [Suspect]
     Active Substance: INTERFERON BETA-1B
     Indication: MULTIPLE SCLEROSIS
     Dosage: 0.3 MG, UNK
     Route: 042
     Dates: start: 1993

REACTIONS (6)
  - Crying [None]
  - Erythema [None]
  - Fatigue [None]
  - Disorientation [None]
  - Depression [None]
  - Pruritus [None]

NARRATIVE: CASE EVENT DATE: 20161219
